FAERS Safety Report 24261021 (Version 1)
Quarter: 2024Q3

REPORT INFORMATION
  Report Type: Spontaneous
  Country: CA (occurrence: None)
  Receive Date: 20240829
  Receipt Date: 20240829
  Transmission Date: 20241017
  Serious: Yes (Life-Threatening, Hospitalization)
  Sender: UMEDICA LABS
  Company Number: CA-Umedica-000100

PATIENT
  Age: 61 Year
  Sex: Female

DRUGS (3)
  1. CARBAMAZEPINE [Suspect]
     Active Substance: CARBAMAZEPINE
     Indication: Suicidal ideation
     Dosage: FOUND CR 400 MG CAPSULE BOTTLE
  2. TRANDOLAPRIL [Concomitant]
     Active Substance: TRANDOLAPRIL
     Indication: Hypertension
  3. ROSUVASTATIN [Concomitant]
     Active Substance: ROSUVASTATIN\ROSUVASTATIN CALCIUM
     Indication: Dyslipidaemia

REACTIONS (10)
  - Lactic acidosis [Recovering/Resolving]
  - Unresponsive to stimuli [Recovering/Resolving]
  - Oxygen saturation decreased [Recovering/Resolving]
  - Generalised tonic-clonic seizure [Recovering/Resolving]
  - Intentional overdose [Unknown]
  - Movement disorder [Recovering/Resolving]
  - Encephalopathy [Recovering/Resolving]
  - Coma [Recovering/Resolving]
  - Areflexia [Recovering/Resolving]
  - Off label use [Unknown]
